FAERS Safety Report 11149632 (Version 1)
Quarter: 2015Q2

REPORT INFORMATION
  Report Type: Report from Study
  Country: US (occurrence: US)
  Receive Date: 20150529
  Receipt Date: 20150529
  Transmission Date: 20150821
  Serious: Yes (Other)
  Sender: FDA-Public Use
  Company Number: US-ASTRAZENECA-2015SE50327

PATIENT
  Age: 735 Month
  Sex: Male
  Weight: 96.2 kg

DRUGS (6)
  1. LISINOPRIL. [Suspect]
     Active Substance: LISINOPRIL
     Indication: BLOOD PRESSURE ABNORMAL
     Route: 048
     Dates: start: 2005
  2. CLONAZEPAM. [Suspect]
     Active Substance: CLONAZEPAM
     Indication: TREMOR
     Dosage: 2 MG DAILY, 1 MG THE NEXT DAY , 1 MG THE NEXT DAY, AND 2 MG THE NEXT DAY
     Route: 048
  3. CRESTOR [Suspect]
     Active Substance: ROSUVASTATIN CALCIUM
     Indication: BLOOD CHOLESTEROL INCREASED
     Route: 048
  4. PRIMIDONE. [Concomitant]
     Active Substance: PRIMIDONE
     Indication: TREMOR
     Route: 048
  5. HYDROCODONE BITARTRATE AND ACETAMINOPHEN [Concomitant]
     Active Substance: ACETAMINOPHEN\HYDROCODONE BITARTRATE
     Indication: ARTHRALGIA
     Dosage: 10 MG, 325 MG, TWO TIMES A DAY
     Route: 048
     Dates: start: 2010
  6. CLONAZEPAM. [Suspect]
     Active Substance: CLONAZEPAM
     Indication: TREMOR
     Route: 048
     Dates: start: 2009

REACTIONS (7)
  - Lethargy [Unknown]
  - Drug effect increased [Unknown]
  - Drug ineffective [Unknown]
  - Disturbance in attention [Unknown]
  - Somnolence [Unknown]
  - Cerebrovascular accident [Unknown]
  - Dysgraphia [Unknown]

NARRATIVE: CASE EVENT DATE: 201105
